FAERS Safety Report 19233632 (Version 1)
Quarter: 2021Q2

REPORT INFORMATION
  Report Type: Spontaneous
  Country: DE (occurrence: DE)
  Receive Date: 20210507
  Receipt Date: 20210507
  Transmission Date: 20210717
  Serious: Yes (Death, Hospitalization)
  Sender: FDA-Public Use
  Company Number: DE-NOVOPROD-807936

PATIENT
  Sex: Male

DRUGS (13)
  1. CITALOPRAM RATIOPHARM [Concomitant]
     Active Substance: CITALOPRAM HYDROBROMIDE
     Dosage: 20 MG
     Route: 065
  2. LACTULOSE HEXAL [Concomitant]
     Dosage: SYRUP 500 ML
     Route: 065
  3. METOPROLOL?RATIOPHARM [Concomitant]
     Active Substance: METOPROLOL
     Dosage: 50 MG
     Route: 065
  4. PREGABALIN. [Concomitant]
     Active Substance: PREGABALIN
     Dosage: UNK
     Route: 065
  5. PANTOZOLE [Concomitant]
     Active Substance: PANTOPRAZOLE SODIUM
     Dosage: 40 MG
     Route: 065
  6. CANDEAMLO [Concomitant]
     Dosage: UNK
     Route: 065
  7. THEOPHYLLINE [Concomitant]
     Active Substance: THEOPHYLLINE ANHYDROUS
     Dosage: UNK
     Route: 065
  8. ZEBINIX [Concomitant]
     Active Substance: ESLICARBAZEPINE ACETATE
     Dosage: UNK
     Route: 065
  9. TIMOMANN [Concomitant]
     Dosage: 0.1 % AT 5 ML (GH)
     Route: 065
  10. ASPIRIN PROTECT [Concomitant]
     Active Substance: ASPIRIN
     Dosage: 100 MG
     Route: 065
  11. HUMAN INSULIN [Suspect]
     Active Substance: INSULIN HUMAN
     Indication: PRODUCT USED FOR UNKNOWN INDICATION
     Dosage: UNK
     Route: 065
  12. NOVALGIN (METAMIZOLE SODIUM) [Concomitant]
     Active Substance: METAMIZOLE SODIUM
     Dosage: DROPS 50 ML
     Route: 065
  13. LACOSAMIDE. [Concomitant]
     Active Substance: LACOSAMIDE
     Dosage: UNK
     Route: 065

REACTIONS (4)
  - Unresponsive to stimuli [Fatal]
  - Blood glucose decreased [Fatal]
  - Intentional product misuse [Fatal]
  - Vomiting [Fatal]

NARRATIVE: CASE EVENT DATE: 20200806
